FAERS Safety Report 7915008-9 (Version None)
Quarter: 2011Q4

REPORT INFORMATION
  Report Type: 
  Country: None (occurrence: None)
  Receive Date: 20111115
  Receipt Date: 20111111
  Transmission Date: 20120403
  Serious: Yes (Hospitalization)
  Sender: FDA-Public Use
  Company Number: DE-CEPHALON-2011005781

PATIENT
  Sex: Male
  Weight: 80 kg

DRUGS (4)
  1. BENDAMUSTINE HCL [Suspect]
     Indication: NON-HODGKIN'S LYMPHOMA
     Route: 042
     Dates: start: 20110415
  2. VALPROINSAURE [Concomitant]
  3. RITUXIMAB [Suspect]
     Indication: NON-HODGKIN'S LYMPHOMA
     Route: 042
     Dates: start: 20110415
  4. TOPIRAMATE [Concomitant]

REACTIONS (3)
  - LEUKOPENIA [None]
  - EPILEPSY [None]
  - URINARY TRACT INFECTION [None]
